FAERS Safety Report 25156810 (Version 2)
Quarter: 2025Q2

REPORT INFORMATION
  Report Type: Spontaneous
  Country: US (occurrence: US)
  Receive Date: 20250403
  Receipt Date: 20250530
  Transmission Date: 20250716
  Serious: No
  Sender: CIPLA
  Company Number: US-CIPLA LTD.-2025US03777

PATIENT

DRUGS (4)
  1. ALBUTEROL [Suspect]
     Active Substance: ALBUTEROL
     Indication: Product used for unknown indication
     Dosage: 180 MCG, BID (2 PUFFS TWICE A DAY)
     Route: 065
  2. ALBUTEROL [Suspect]
     Active Substance: ALBUTEROL
     Dosage: 180 MCG, BID (2 PUFFS TWICE A DAY)
     Route: 065
  3. ALBUTEROL [Suspect]
     Active Substance: ALBUTEROL
     Dosage: 180 MCG, BID (2 PUFFS TWICE A DAY) (ALREADY THREW AWAY THIS INHALER)
     Route: 065
  4. ALBUTEROL [Suspect]
     Active Substance: ALBUTEROL
     Dosage: 180 MCG, BID (2 PUFFS TWICE A DAY)
     Route: 065

REACTIONS (3)
  - Incorrect dose administered by device [Unknown]
  - Device delivery system issue [Unknown]
  - Device issue [Unknown]
